FAERS Safety Report 25231671 (Version 3)
Quarter: 2025Q2

REPORT INFORMATION
  Report Type: Spontaneous
  Country: TW (occurrence: None)
  Receive Date: 20250423
  Receipt Date: 20250514
  Transmission Date: 20250716
  Serious: No
  Sender: INCYTE
  Company Number: TW-002147023-NVSC2025TW064409

PATIENT
  Age: 6 Year

DRUGS (1)
  1. RUXOLITINIB [Suspect]
     Active Substance: RUXOLITINIB
     Indication: Chronic graft versus host disease
     Dosage: 5 MG, QD (5MG 1/2 TAB QD)

REACTIONS (2)
  - Off label use [Unknown]
  - Therapeutic product effect incomplete [Recovering/Resolving]
